FAERS Safety Report 4613372-X (Version None)
Quarter: 2005Q1

REPORT INFORMATION
  Report Type: 
  Country: None (occurrence: None)
  Receive Date: 20050316
  Receipt Date: 20050228
  Transmission Date: 20050727
  Serious: Yes (Disabling)
  Sender: FDA-Public Use
  Company Number: S05-DEN-01000-01

PATIENT
  Sex: Female
  Weight: 54 kg

DRUGS (1)
  1. CIPRALEX (ESCITALOPRAM) [Suspect]
     Indication: DEPRESSION
     Dosage: 10 MG QD PO
     Route: 048
     Dates: start: 20041217

REACTIONS (3)
  - CENTRAL PONTINE MYELINOLYSIS [None]
  - CONFUSIONAL STATE [None]
  - HYPONATRAEMIA [None]
